FAERS Safety Report 25939202 (Version 1)
Quarter: 2025Q4

REPORT INFORMATION
  Report Type: Spontaneous
  Country: CN (occurrence: CN)
  Receive Date: 20251020
  Receipt Date: 20251020
  Transmission Date: 20260117
  Serious: Yes (Hospitalization, Other)
  Sender: Haleon PLC
  Company Number: CN-HALEON-2267613

PATIENT
  Age: 67 Year
  Sex: Male
  Weight: 95 kg

DRUGS (1)
  1. IBUPROFEN [Suspect]
     Active Substance: IBUPROFEN
     Indication: Analgesic therapy
     Route: 048
     Dates: start: 20250920, end: 20250927

REACTIONS (12)
  - Upper gastrointestinal haemorrhage [Recovering/Resolving]
  - Palpitations [Recovering/Resolving]
  - Abdominal discomfort [Recovering/Resolving]
  - Anaemia [Recovering/Resolving]
  - Muscular weakness [Recovering/Resolving]
  - Abdominal pain upper [Recovering/Resolving]
  - Faeces discoloured [Recovering/Resolving]
  - Infrequent bowel movements [Recovering/Resolving]
  - Dyspnoea [Recovering/Resolving]
  - Asthenia [Recovering/Resolving]
  - Melaena [Recovered/Resolved]
  - Faeces hard [Recovering/Resolving]

NARRATIVE: CASE EVENT DATE: 20250925
